FAERS Safety Report 13328429 (Version 1)
Quarter: 2017Q1

REPORT INFORMATION
  Report Type: Spontaneous
  Country: US (occurrence: US)
  Receive Date: 20170313
  Receipt Date: 20170313
  Transmission Date: 20170428
  Serious: No
  Sender: FDA-Public Use
  Company Number: US-JNJFOC-20170202266

PATIENT
  Age: 75 Year
  Sex: Female

DRUGS (2)
  1. SUDAFED 12 HOUR [Suspect]
     Active Substance: PSEUDOEPHEDRINE HYDROCHLORIDE
     Indication: HYPERSENSITIVITY
     Dosage: 8AM AND 8PM FOR 2 WEEKS
     Route: 048
     Dates: start: 201701, end: 20170130
  2. SUDAFED 12 HOUR [Suspect]
     Active Substance: PSEUDOEPHEDRINE HYDROCHLORIDE
     Indication: SINUS CONGESTION
     Dosage: 8AM AND 8PM FOR 2 WEEKS
     Route: 048
     Dates: start: 201701, end: 20170130

REACTIONS (1)
  - Incorrect drug administration duration [Unknown]
